FAERS Safety Report 4745798-8 (Version None)
Quarter: 2005Q3

REPORT INFORMATION
  Report Type: 
  Country: None (occurrence: None)
  Receive Date: 20050816
  Receipt Date: 20050810
  Transmission Date: 20060218
  Serious: Yes (Other)
  Sender: FDA-Public Use
  Company Number: 200517182GDDC

PATIENT
  Age: 45 Year
  Sex: Male

DRUGS (2)
  1. ARAVA [Suspect]
     Indication: RHEUMATOID ARTHRITIS
     Dates: start: 20040101
  2. PREDNISOLONE [Concomitant]

REACTIONS (2)
  - INTRA-UTERINE DEATH [None]
  - TRANSMISSION OF DRUG VIA SEMEN [None]
